FAERS Safety Report 5597829-3 (Version None)
Quarter: 2007Q4

REPORT INFORMATION
  Report Type: 
  Country: None (occurrence: None)
  Receive Date: 20071221
  Receipt Date: 20070210
  Transmission Date: 20080405
  Serious: Yes (Other)
  Sender: FDA-Public Use
  Company Number: 2007000307

PATIENT
  Age: 9 Year
  Sex: Male

DRUGS (1)
  1. MEDROL [Suspect]
     Indication: BRONCHITIS
     Dates: start: 20061212, end: 20061218

REACTIONS (1)
  - BLOOD GLUCOSE INCREASED [None]
